FAERS Safety Report 23862853 (Version 1)
Quarter: 2024Q2

REPORT INFORMATION
  Report Type: Spontaneous
  Country: US (occurrence: US)
  Receive Date: 20240516
  Receipt Date: 20240516
  Transmission Date: 20240716
  Serious: No
  Sender: FDA-Public Use
  Company Number: US-BRISTOL-MYERS SQUIBB COMPANY-2024-075526

PATIENT
  Age: 83 Year
  Sex: Female

DRUGS (1)
  1. LENALIDOMIDE [Suspect]
     Active Substance: LENALIDOMIDE
     Indication: Plasma cell myeloma in remission
     Dosage: FREQUENCY:  EVERY DAY ON MONDAY THROUGH FRIDAY FOR 2 WEEKS ON FOLLOWED BY 1 WEEK OFF
     Route: 048

REACTIONS (3)
  - Product physical issue [Unknown]
  - Off label use [Unknown]
  - Poor quality product administered [Unknown]
